FAERS Safety Report 18623047 (Version 1)
Quarter: 2020Q4

REPORT INFORMATION
  Report Type: Spontaneous
  Country: US (occurrence: US)
  Receive Date: 20201216
  Receipt Date: 20201216
  Transmission Date: 20210114
  Serious: No
  Sender: FDA-Public Use
  Company Number: US-MSNLABS-2020MSNSPO00425

PATIENT

DRUGS (3)
  1. GABAPENTIN. [Concomitant]
     Active Substance: GABAPENTIN
     Indication: PAIN
     Route: 065
  2. LYRICA [Concomitant]
     Active Substance: PREGABALIN
     Indication: PAIN
  3. PREGABALIN CAPSULES 100 MG [Suspect]
     Active Substance: PREGABALIN
     Indication: PAIN
     Route: 048

REACTIONS (2)
  - Therapeutic product effect incomplete [Unknown]
  - Product substitution issue [Unknown]
